FAERS Safety Report 13514409 (Version 1)
Quarter: 2017Q2

REPORT INFORMATION
  Report Type: Spontaneous
  Country: US (occurrence: US)
  Receive Date: 20170504
  Receipt Date: 20170504
  Transmission Date: 20170830
  Serious: No
  Sender: FDA-Public Use
  Company Number: US-ABBVIE-16P-163-1751217-00

PATIENT
  Age: 7 Year
  Sex: Male

DRUGS (3)
  1. CALPOL [Concomitant]
     Active Substance: ACETAMINOPHEN
     Indication: PAIN
  2. CREON [Suspect]
     Active Substance: PANCRELIPASE AMYLASE\PANCRELIPASE LIPASE\PANCRELIPASE PROTEASE
     Indication: CYSTIC FIBROSIS
     Route: 065
  3. MOVICOL [Concomitant]
     Active Substance: POLYETHYLENE GLYCOL 3350\POTASSIUM CHLORIDE\SODIUM BICARBONATE\SODIUM CHLORIDE
     Indication: DISTAL INTESTINAL OBSTRUCTION SYNDROME

REACTIONS (4)
  - Steatorrhoea [Unknown]
  - Abdominal pain upper [Unknown]
  - Pain [Unknown]
  - Drug ineffective [Unknown]
